FAERS Safety Report 7017386-4 (Version None)
Quarter: 2010Q3

REPORT INFORMATION
  Report Type: 
  Country: None (occurrence: None)
  Receive Date: 20100928
  Receipt Date: 20100917
  Transmission Date: 20110219
  Serious: Yes (Other)
  Sender: FDA-Public Use
  Company Number: JP-BRISTOL-MYERS SQUIBB COMPANY-15279276

PATIENT
  Age: 22 Year
  Sex: Female

DRUGS (6)
  1. ABILIFY [Suspect]
     Indication: SCHIZOPHRENIA
     Dosage: 7:17AUG10:30MG 18AUG10:ONG:34MG DOSE DECREASED TO 24 MG/DAY (18AUG10)
     Route: 048
     Dates: start: 20100807
  2. CYMBALTA [Suspect]
     Indication: DEPRESSION
     Dosage: 20MG CAPSULES
     Route: 048
     Dates: start: 20100603
  3. SEROQUEL [Concomitant]
     Dosage: 1 DOSAGE FORM = 100-400MG TABS 1OO MG 6FEB2010-UNK
     Route: 048
     Dates: start: 20100601
  4. BROTIZOLAM [Concomitant]
     Dosage: TABS
     Dates: start: 20090616
  5. ROHYPNOL [Concomitant]
     Dates: start: 20090618
  6. DEPAKENE [Concomitant]
     Dosage: DEPAKENE-R TABS
     Dates: start: 20090626

REACTIONS (1)
  - ALTERED STATE OF CONSCIOUSNESS [None]
